FAERS Safety Report 4603099-2 (Version None)
Quarter: 2005Q1

REPORT INFORMATION
  Report Type: 
  Country: None (occurrence: None)
  Receive Date: 20050307
  Receipt Date: 20050215
  Transmission Date: 20050727
  Serious: Yes (Hospitalization)
  Sender: FDA-Public Use
  Company Number: 2005009714

PATIENT
  Age: 76 Year
  Sex: Female

DRUGS (8)
  1. CEFPODOXIME PROXETIL [Suspect]
     Indication: CHRONIC OBSTRUCTIVE PULMONARY DISEASE
     Dosage: ORAL
     Route: 048
  2. CLAVUMOX (CLAVULANATE POTASSIUM, AMOXICILLIN TRIHYDRATE) [Suspect]
     Indication: CHRONIC OBSTRUCTIVE PULMONARY DISEASE
     Dosage: 3 GRAM, ORAL
     Route: 048
     Dates: start: 20040807, end: 20040814
  3. PRISTINAMYCIN (PRISTINAMYCIN) [Suspect]
     Indication: ILL-DEFINED DISORDER
     Dosage: 1 GRAM, ORAL
     Route: 048
     Dates: start: 20040901, end: 20040904
  4. RHODOGIL (SPIRAMYCIN) [Concomitant]
  5. TIAPROFENIC ACID (TIAPROFENIC ACID) [Concomitant]
  6. CIPROFLOXACIN [Concomitant]
  7. LEVOCETIRIZINE DIHYDROCHLORIDE (LEVOCETIRIZINE DIHYDROCHLORIDE) [Concomitant]
  8. HYDROXYZINE HCL [Concomitant]

REACTIONS (4)
  - CONDITION AGGRAVATED [None]
  - DERMATITIS EXFOLIATIVE [None]
  - LYMPHADENITIS [None]
  - MYCOSIS FUNGOIDES [None]
